FAERS Safety Report 8593453 (Version 2)
Quarter: 2013Q2

REPORT INFORMATION
  Report Type: Spontaneous
  Country: US (occurrence: US)
  Receive Date: 20120604
  Receipt Date: 20130619
  Transmission Date: 20140414
  Serious: No
  Sender: FDA-Public Use
  Company Number: US-ASTRAZENECA-2012SE34937

PATIENT
  Age: 25719 Day
  Sex: Female
  Weight: 72.1 kg

DRUGS (12)
  1. NEXIUM [Suspect]
     Indication: GASTROOESOPHAGEAL REFLUX DISEASE
     Route: 048
  2. NEXIUM [Suspect]
     Indication: GASTROOESOPHAGEAL REFLUX DISEASE
     Dosage: 1 TIME A DAY
     Route: 048
     Dates: start: 2006, end: 2010
  3. TUMS [Concomitant]
  4. INDAPAMINE [Concomitant]
     Indication: POLYURIA
  5. AMLODIPINE BESYLATE [Concomitant]
     Indication: HYPERTENSION
  6. LOSARTAN POTASSIUM [Concomitant]
     Indication: HYPERTENSION
  7. SPIRONOLACTONE [Concomitant]
     Indication: HYPERTENSION
  8. VITAMINE D3 [Concomitant]
     Indication: VITAMIN D ABNORMAL
  9. VITAMINS [Concomitant]
  10. ASPIRIN [Concomitant]
  11. FISH OIL [Concomitant]
  12. DIGESTIVE ADVANTAGE [Concomitant]

REACTIONS (6)
  - Osteoporosis [Unknown]
  - Multiple fractures [Unknown]
  - Arthritis [Unknown]
  - Cataract [Unknown]
  - Depression [Unknown]
  - Vitamin D deficiency [Unknown]
